FAERS Safety Report 6386011-8 (Version None)
Quarter: 2009Q4

REPORT INFORMATION
  Report Type: 
  Country: None (occurrence: None)
  Receive Date: 20091002
  Receipt Date: 20081110
  Transmission Date: 20100525
  Serious: No
  Sender: FDA-Public Use
  Company Number: US-ASTRAZENECA-2008UW25106

PATIENT
  Age: 65 Year
  Sex: Female
  Weight: 88.5 kg

DRUGS (4)
  1. ARIMIDEX [Suspect]
     Indication: BREAST CANCER
     Route: 048
     Dates: start: 20080601
  2. GENERIC SYNTHROID [Concomitant]
  3. MICARDIS [Concomitant]
  4. VYTORIN [Concomitant]

REACTIONS (3)
  - CHILLS [None]
  - FATIGUE [None]
  - HOT FLUSH [None]
